FAERS Safety Report 11788909 (Version 1)
Quarter: 2015Q4

REPORT INFORMATION
  Report Type: Spontaneous
  Country: IT (occurrence: IT)
  Receive Date: 20151201
  Receipt Date: 20151201
  Transmission Date: 20160305
  Serious: Yes (Hospitalization)
  Sender: FDA-Public Use
  Company Number: IT-ACTAVIS-2015-17943

PATIENT
  Age: 55 Year
  Sex: Female

DRUGS (4)
  1. VENLAFAXINE [Concomitant]
     Active Substance: VENLAFAXINE HYDROCHLORIDE
     Indication: PRODUCT USED FOR UNKNOWN INDICATION
     Dosage: UNK UNK, UNKNOWN, TABLET
     Route: 048
  2. TAVOR [Suspect]
     Active Substance: LORAZEPAM
     Dosage: 2.5 MG, DAILY (1 TABLET)
     Route: 065
  3. GABAPENTIN (UNKNOWN) [Suspect]
     Active Substance: GABAPENTIN
     Indication: DRUG ABUSE
     Dosage: 15 G, TOTAL
     Route: 048
     Dates: start: 20150702, end: 20150702
  4. TAVOR [Suspect]
     Active Substance: LORAZEPAM
     Indication: DRUG ABUSE
     Dosage: 22.5 MG, TOTAL IN THE EVENING
     Route: 048
     Dates: start: 20150702, end: 20150702

REACTIONS (4)
  - Sopor [Unknown]
  - Overdose [Unknown]
  - Intentional self-injury [Unknown]
  - Drug abuse [Unknown]

NARRATIVE: CASE EVENT DATE: 20150702
